FAERS Safety Report 8790232 (Version 6)
Quarter: 2014Q1

REPORT INFORMATION
  Report Type: Report from Study
  Country: DE (occurrence: DE)
  Receive Date: 20120917
  Receipt Date: 20140124
  Transmission Date: 20141002
  Serious: Yes (Hospitalization)
  Sender: FDA-Public Use
  Company Number: DE-BAYER-2012-093266

PATIENT
  Age: 15 Year
  Sex: Male
  Weight: 44.9 kg

DRUGS (7)
  1. BETAFERON [Suspect]
     Indication: RELAPSING-REMITTING MULTIPLE SCLEROSIS
     Dosage: 250 ?G, QOD
     Dates: start: 20120220
  2. CORTISONE [Suspect]
     Dosage: UNK
     Dates: start: 201202
  3. URBASON [Concomitant]
     Indication: MULTIPLE SCLEROSIS
     Dosage: 900 MG, QD
     Route: 042
     Dates: start: 20120214, end: 20120218
  4. ANTRA [Concomitant]
     Indication: GASTRITIS PROPHYLAXIS
     Dosage: 20 MG, QD
     Route: 048
     Dates: start: 20120214, end: 20120218
  5. DOLORMIN [Concomitant]
     Indication: INFLUENZA LIKE ILLNESS
     Dosage: 200MG TWICE A MONTH
     Route: 048
     Dates: start: 201206
  6. DICLOFENAC [Concomitant]
     Indication: PAIN
     Dosage: 50 MG, QD
     Route: 048
     Dates: start: 20120606, end: 20120606
  7. LEVETIRACETAM [Concomitant]
     Dosage: 500 MG, BID
     Route: 048
     Dates: start: 201307

REACTIONS (7)
  - Benign intracranial hypertension [Recovering/Resolving]
  - Influenza like illness [Not Recovered/Not Resolved]
  - Liver function test abnormal [Recovering/Resolving]
  - Cerebrovascular disorder [Not Recovered/Not Resolved]
  - Convulsion [Recovered/Resolved with Sequelae]
  - Headache [Not Recovered/Not Resolved]
  - Nausea [Recovered/Resolved]
